FAERS Safety Report 7400569-9 (Version None)
Quarter: 2011Q2

REPORT INFORMATION
  Report Type: 
  Country: None (occurrence: None)
  Receive Date: 20110407
  Receipt Date: 20110331
  Transmission Date: 20111010
  Serious: Yes (Other)
  Sender: FDA-Public Use
  Company Number: US-PFIZER INC-2011043056

PATIENT
  Sex: Female

DRUGS (6)
  1. CLONIDINE [Suspect]
     Dosage: UNK
  2. NICOTROL [Concomitant]
     Dosage: 1 SPRAY EACH NOSTRIL 1-2 EVERY HOUR
  3. VICODIN [Concomitant]
  4. NEURONTIN [Suspect]
     Dosage: 400 MG, UNK
  5. MILNACIPRAN HYDROCHLORIDE [Suspect]
     Dosage: UNK
  6. VALIUM [Suspect]
     Dosage: 10 MG, UNK

REACTIONS (2)
  - SPINAL OPERATION [None]
  - INJURY [None]
